FAERS Safety Report 6318447-5 (Version None)
Quarter: 2009Q3

REPORT INFORMATION
  Report Type: 
  Country: None (occurrence: None)
  Receive Date: 20090821
  Receipt Date: 20090813
  Transmission Date: 20100115
  Serious: Yes (Other)
  Sender: FDA-Public Use
  Company Number: US-BAYER-200929994NA

PATIENT
  Age: 32 Year
  Sex: Female

DRUGS (2)
  1. AVELOX [Suspect]
     Indication: SINUSITIS
     Dosage: TOTAL DAILY DOSE: 400 MG  UNIT DOSE: 400 MG
     Dates: start: 20090728, end: 20090728
  2. CELEXA [Concomitant]

REACTIONS (5)
  - BLOOD PRESSURE INCREASED [None]
  - FEELING HOT [None]
  - HYPERSENSITIVITY [None]
  - PARAESTHESIA [None]
  - TREMOR [None]
